FAERS Safety Report 6212045-X (Version None)
Quarter: 2009Q2

REPORT INFORMATION
  Report Type: 
  Country: None (occurrence: None)
  Receive Date: 20090602
  Receipt Date: 20090508
  Transmission Date: 20091009
  Serious: Yes (Other)
  Sender: FDA-Public Use
  Company Number: ES-AVENTIS-200915126GDDC

PATIENT
  Age: 49 Year
  Sex: Female

DRUGS (12)
  1. GLIBENCLAMIDE [Suspect]
     Route: 048
  2. LANTUS [Suspect]
  3. METFORMIN HYDROCHLORIDE [Suspect]
     Route: 048
  4. TRANDOLAPRIL [Suspect]
     Indication: HYPERTENSION
     Dates: end: 20060420
  5. ALOSITOL [Suspect]
  6. GLUCOBAY [Suspect]
  7. CARDENALIN [Suspect]
  8. AMLODIPINE [Suspect]
  9. NU-LOTAN [Suspect]
  10. VALSARTAN [Concomitant]
     Dates: start: 20060421
  11. OMEPRAZOLE [Concomitant]
  12. KETOCONAZOLE [Concomitant]

REACTIONS (7)
  - DRUG INEFFECTIVE [None]
  - DRUG INTERACTION [None]
  - HAEMOLYTIC ANAEMIA [None]
  - HYPERTENSION [None]
  - HYPOGLYCAEMIA [None]
  - POISONING [None]
  - THROMBOCYTOPENIA [None]
